FAERS Safety Report 10751906 (Version 1)
Quarter: 2015Q1

REPORT INFORMATION
  Report Type: Spontaneous
  Country: US (occurrence: US)
  Receive Date: 20150130
  Receipt Date: 20150130
  Transmission Date: 20150721
  Serious: No
  Sender: FDA-Public Use
  Company Number: US-ENDO PHARMACEUTICALS INC.-FORT20140169

PATIENT
  Sex: Male

DRUGS (4)
  1. FORTESTA [Suspect]
     Active Substance: TESTOSTERONE
     Indication: BLOOD TESTOSTERONE DECREASED
     Route: 061
  2. FORTESTA [Suspect]
     Active Substance: TESTOSTERONE
     Route: 061
  3. FORTESTA [Suspect]
     Active Substance: TESTOSTERONE
     Route: 061
  4. FORTESTA [Suspect]
     Active Substance: TESTOSTERONE
     Route: 061

REACTIONS (3)
  - Underdose [Recovered/Resolved]
  - Prescribed overdose [Not Recovered/Not Resolved]
  - Drug ineffective [Not Recovered/Not Resolved]

NARRATIVE: CASE EVENT DATE: 2014
